FAERS Safety Report 5452749-X (Version None)
Quarter: 2007Q3

REPORT INFORMATION
  Report Type: 
  Country: None (occurrence: None)
  Receive Date: 20070914
  Receipt Date: 20070907
  Transmission Date: 20080115
  Serious: Yes (Life-Threatening, Hospitalization)
  Sender: FDA-Public Use
  Company Number: US-MERCK-0707USA03794

PATIENT
  Sex: Female

DRUGS (5)
  1. JANUVIA [Suspect]
     Indication: TYPE 2 DIABETES MELLITUS
     Route: 048
     Dates: start: 20070321, end: 20070101
  2. CRESTOR [Concomitant]
     Indication: HYPERLIPIDAEMIA
     Route: 065
     Dates: end: 20070101
  3. [THERAPY UNSPECIFIED] [Concomitant]
     Indication: ANGIOTENSIN CONVERTING ENZYME INHIBITOR FOETOPATHY
     Route: 065
     Dates: end: 20070101
  4. METFORMIN [Concomitant]
     Route: 065
     Dates: start: 20070321, end: 20070101
  5. LISINOPRIL [Concomitant]
     Indication: HYPERTENSION
     Route: 065
     Dates: end: 20070101

REACTIONS (2)
  - PANCREATITIS [None]
  - RENAL FAILURE ACUTE [None]
